FAERS Safety Report 25242524 (Version 2)
Quarter: 2025Q2

REPORT INFORMATION
  Report Type: Spontaneous
  Country: US (occurrence: US)
  Receive Date: 20250427
  Receipt Date: 20250618
  Transmission Date: 20250716
  Serious: Yes (Hospitalization, Other)
  Sender: JOHNSON AND JOHNSON
  Company Number: US-JNJFOC-20250423185

PATIENT
  Age: 71 Year
  Sex: Female

DRUGS (2)
  1. CARVYKTI [Suspect]
     Active Substance: CILTACABTAGENE AUTOLEUCEL
     Indication: Plasma cell myeloma
     Route: 042
     Dates: start: 20231226
  2. IMMUNE GLOBULIN NOS [Concomitant]
     Active Substance: IMMUNE GLOBULIN NOS
     Indication: Product used for unknown indication
     Route: 042

REACTIONS (10)
  - Syncope [Unknown]
  - Cytokine release syndrome [Unknown]
  - Headache [Not Recovered/Not Resolved]
  - Dizziness [Not Recovered/Not Resolved]
  - Injury [Unknown]
  - Feeling hot [Unknown]
  - Balance disorder [Unknown]
  - Nausea [Unknown]
  - Vision blurred [Unknown]
  - Heart rate irregular [Unknown]

NARRATIVE: CASE EVENT DATE: 20240301
